FAERS Safety Report 8515607 (Version 3)
Quarter: 2012Q4

REPORT INFORMATION
  Report Type: 
  Country: US (occurrence: US)
  Receive Date: 20120417
  Receipt Date: 20120907
  Transmission Date: 20130627
  Serious: Yes (Hospitalization, Other)
  Sender: FDA-Public Use
  Company Number: US-BAYER-2012-034638

PATIENT
  Age: 34 Year
  Sex: Female
  Weight: 58.96 kg

DRUGS (5)
  1. YAZ [Suspect]
     Indication: PREMENSTRUAL SYNDROME
     Dosage: UNK
     Dates: start: 200801, end: 2009
  2. YAZ [Suspect]
     Indication: PREMENSTRUAL SYNDROME
  3. VITAMIN C [ASCORBIC ACID] [Concomitant]
  4. NSAID^S [Concomitant]
  5. SINUS MEDICINE [Concomitant]
     Indication: SINUS DISORDER
     Dosage: UNK
     Dates: start: 1998

REACTIONS (2)
  - Cholelithiasis [None]
  - Cholecystitis [None]
